FAERS Safety Report 4819823-X (Version None)
Quarter: 2005Q4

REPORT INFORMATION
  Report Type: 
  Country: None (occurrence: None)
  Receive Date: 20051102
  Receipt Date: 20051019
  Transmission Date: 20060501
  Serious: Yes (Death)
  Sender: FDA-Public Use
  Company Number: 217912

PATIENT
  Age: 73 Year
  Sex: Male

DRUGS (12)
  1. RITUXAN [Suspect]
     Indication: DIFFUSE LARGE B-CELL LYMPHOMA
     Dosage: 480 MG, INTRAVENOUS
     Route: 042
     Dates: start: 20040212, end: 20040416
  2. PIRARUBICIN (PIRARUBICIN) [Suspect]
     Indication: DIFFUSE LARGE B-CELL LYMPHOMA
     Dosage: 60 MG, INTRAVENOUS
     Route: 042
     Dates: start: 20040120, end: 20040420
  3. CYCLOPHOSPHAMIDE [Suspect]
     Indication: DIFFUSE LARGE B-CELL LYMPHOMA
     Dosage: 900 MG, INTRAVENOUS
     Route: 042
     Dates: start: 20040120, end: 20040420
  4. VINCRISTINE SULFATE [Suspect]
     Indication: DIFFUSE LARGE B-CELL LYMPHOMA
     Dosage: 1.5 MG, INTRAVENOUS
     Route: 042
     Dates: start: 20040120, end: 20040420
  5. PREDNISONE [Suspect]
     Indication: DIFFUSE LARGE B-CELL LYMPHOMA
     Dates: start: 20040120
  6. ANTIBIOTICS NOS (ANTIBIOTICS NOS) [Concomitant]
  7. ANTIFUNGAL AGENTS (ANTIFUNGAL AGENTS) [Concomitant]
  8. VASOPRESSOR (VASOPRESSORS NOS) [Concomitant]
  9. STEROIDS NOS (STEROID NOS) [Concomitant]
  10. GAMMAGLOBULIN (GLOBULIN, IMMUNE) [Concomitant]
  11. DIGOXIN [Concomitant]
  12. WARFARIN SODIUM [Concomitant]

REACTIONS (12)
  - ATRIAL FIBRILLATION [None]
  - DUODENAL ULCER PERFORATION [None]
  - HEPATIC ENCEPHALOPATHY [None]
  - HEPATIC FAILURE [None]
  - HEPATIC FUNCTION ABNORMAL [None]
  - HEPATITIS B [None]
  - INFECTION [None]
  - MULTI-ORGAN FAILURE [None]
  - PNEUMONIA ASPIRATION [None]
  - PRODUCTIVE COUGH [None]
  - PYREXIA [None]
  - SEPTIC SHOCK [None]
